FAERS Safety Report 5227904-4 (Version None)
Quarter: 2007Q1

REPORT INFORMATION
  Report Type: 
  Country: None (occurrence: None)
  Receive Date: 20070202
  Receipt Date: 20070123
  Transmission Date: 20070707
  Serious: Yes (Other)
  Sender: FDA-Public Use
  Company Number: US-PFIZER INC-2006109474

PATIENT
  Sex: Female
  Weight: 136.1 kg

DRUGS (3)
  1. DOSTINEX [Suspect]
     Indication: PROLACTINOMA
  2. DOSTINEX [Suspect]
     Indication: PROLACTIN-PRODUCING PITUITARY TUMOUR
  3. CABERGOLINE [Suspect]
     Indication: PROLACTIN-PRODUCING PITUITARY TUMOUR

REACTIONS (7)
  - ARTHRITIS [None]
  - ASTHMA [None]
  - BLOOD PROLACTIN ABNORMAL [None]
  - DIABETES MELLITUS [None]
  - HEADACHE [None]
  - MALAISE [None]
  - SINUSITIS [None]
